FAERS Safety Report 10096534 (Version 4)
Quarter: 2014Q3

REPORT INFORMATION
  Report Type: Spontaneous
  Country: CA (occurrence: CA)
  Receive Date: 20140422
  Receipt Date: 20140820
  Transmission Date: 20150326
  Serious: Yes (Life-Threatening, Hospitalization)
  Sender: FDA-Public Use
  Company Number: CA-GE HEALTHCARE MEDICAL DIAGNOSTICS-VISP-PR-1404S-0176

PATIENT
  Age: 92 Year
  Sex: Male

DRUGS (13)
  1. VISIPAQUE [Suspect]
     Active Substance: IODIXANOL
     Indication: COLON CANCER
  2. VISIPAQUE [Suspect]
     Active Substance: IODIXANOL
     Indication: COLOSTOMY
  3. PMS-LOPERAMIDE [Concomitant]
  4. MAGLUCATE [Concomitant]
  5. RAN-ATORVASTATIN [Concomitant]
  6. APO-TAMSULOSIN [Concomitant]
  7. MINT-METFORMIN [Concomitant]
  8. VISIPAQUE [Suspect]
     Active Substance: IODIXANOL
     Indication: DIAGNOSTIC PROCEDURE
  9. JAMP-METOPROLOL [Concomitant]
  10. JAMP-ACETAMINOPHEN [Concomitant]
  11. DIAMICRON MR 60 [Concomitant]
  12. MYLAN-LANSOPRAZOLE [Concomitant]
  13. VISIPAQUE [Suspect]
     Active Substance: IODIXANOL
     Indication: ABDOMINAL PAIN LOWER
     Route: 042
     Dates: start: 20140319, end: 20140319

REACTIONS (3)
  - Cough [Unknown]
  - Contrast media allergy [Unknown]
  - Anaemia [Unknown]

NARRATIVE: CASE EVENT DATE: 20140319
